FAERS Safety Report 5100961-1 (Version None)
Quarter: 2006Q3

REPORT INFORMATION
  Report Type: 
  Country: None (occurrence: None)
  Receive Date: 20060911
  Receipt Date: 20060315
  Transmission Date: 20061208
  Serious: Yes (Other)
  Sender: FDA-Public Use
  Company Number: PHBS2006BR04203

PATIENT
  Age: 55 Year
  Sex: Female

DRUGS (2)
  1. CATAFLAM [Suspect]
     Indication: BACK PAIN
     Route: 048
  2. CATAFLAM [Suspect]
     Dosage: UNK, BID
     Route: 061

REACTIONS (6)
  - ABDOMINAL PAIN UPPER [None]
  - DIZZINESS [None]
  - DRUG DEPENDENCE [None]
  - DRUG INEFFECTIVE [None]
  - DRUG TOXICITY [None]
  - NAUSEA [None]
